FAERS Safety Report 4428600-3 (Version None)
Quarter: 2004Q3

REPORT INFORMATION
  Report Type: 
  Country: None (occurrence: None)
  Receive Date: 20040818
  Receipt Date: 20040809
  Transmission Date: 20050211
  Serious: Yes (Death)
  Sender: FDA-Public Use
  Company Number: US-JNJFOC-20040803511

PATIENT
  Age: 58 Year
  Sex: Male
  Weight: 104.33 kg

DRUGS (3)
  1. ULTRAM [Suspect]
     Indication: BACK PAIN
     Dosage: EVERY 3-4 HOURS
     Route: 065
  2. HYDROCODONE [Concomitant]
  3. MORPHINE [Concomitant]

REACTIONS (2)
  - BLOOD GLUCOSE INCREASED [None]
  - RESPIRATORY DISORDER [None]
